FAERS Safety Report 8223289-X (Version None)
Quarter: 2012Q1

REPORT INFORMATION
  Report Type: 
  Country: None (occurrence: None)
  Receive Date: 20120321
  Receipt Date: 20120313
  Transmission Date: 20120608
  Serious: Yes (Death, Life-Threatening, Hospitalization)
  Sender: FDA-Public Use
  Company Number: NL-ROCHE-GNE321214

PATIENT
  Sex: Male
  Weight: 74.079 kg

DRUGS (12)
  1. ONDANSETRON [Concomitant]
     Indication: NAUSEA
     Route: 048
     Dates: start: 20110120, end: 20110122
  2. PREDNISONE TAB [Suspect]
     Indication: B-CELL LYMPHOMA
     Dosage: 500 MG, UNK
     Dates: start: 20101111
  3. MABTHERA [Suspect]
     Indication: B-CELL LYMPHOMA
     Dosage: 710 MG, UNK
     Route: 042
     Dates: start: 20101111
  4. VALACYCLOVIR [Concomitant]
     Indication: VIRAL INFECTION
  5. DOXORUBICIN HCL [Suspect]
     Indication: B-CELL LYMPHOMA
     Dosage: UNK
     Route: 042
     Dates: start: 20101111
  6. DICLOFENAC SODIUM [Concomitant]
     Indication: PAIN
  7. NEULASTA [Suspect]
     Indication: B-CELL LYMPHOMA
     Dosage: 6 MG, UNK
  8. FENAZEPAM [Concomitant]
     Indication: INSOMNIA
  9. ALLOPURINOL [Concomitant]
     Indication: GOUT
  10. VINCRISTINE [Suspect]
     Indication: B-CELL LYMPHOMA
     Dosage: 1 MG, UNK
     Dates: start: 20101111
  11. CYCLOPHOSPHAMIDE [Suspect]
     Indication: B-CELL LYMPHOMA
     Dosage: 1430 MG, UNK
     Route: 042
     Dates: start: 20101111
  12. COTRIM [Concomitant]
     Indication: FUNGAL INFECTION
     Dates: start: 20101111

REACTIONS (12)
  - PNEUMONIA [None]
  - FEBRILE NEUTROPENIA [None]
  - NEOPLASM MALIGNANT [None]
  - FAECAL INCONTINENCE [None]
  - ASTHENIA [None]
  - LOSS OF CONSCIOUSNESS [None]
  - FALL [None]
  - CARDIAC FAILURE [None]
  - FATIGUE [None]
  - PALPITATIONS [None]
  - FEELING ABNORMAL [None]
  - MULTI-ORGAN FAILURE [None]
